FAERS Safety Report 4704193-8 (Version None)
Quarter: 2005Q2

REPORT INFORMATION
  Report Type: 
  Country: None (occurrence: None)
  Receive Date: 20050630
  Receipt Date: 20050618
  Transmission Date: 20051028
  Serious: Yes (Other)
  Sender: FDA-Public Use
  Company Number: PHEH2005US06927

PATIENT
  Age: 9 Year
  Sex: Male
  Weight: 32 kg

DRUGS (1)
  1. GLEEVEC [Suspect]
     Indication: FIBROMATOSIS
     Dosage: 300 MG, QD
     Dates: start: 20040101

REACTIONS (1)
  - GROWTH RETARDATION [None]
